FAERS Safety Report 10273113 (Version 1)
Quarter: 2014Q2

REPORT INFORMATION
  Report Type: Spontaneous
  Country: US (occurrence: None)
  Receive Date: 20140627
  Receipt Date: 20140627
  Transmission Date: 20141212
  Serious: Yes (Other)
  Sender: FDA-Public Use
  Company Number: None

PATIENT
  Age: 56 Year
  Sex: Female

DRUGS (1)
  1. RIZATRIPTAN [Suspect]
     Indication: MIGRAINE
     Dosage: 1, PRN, MI, HA
     Dates: start: 20130614, end: 20140625

REACTIONS (1)
  - Drug ineffective [None]
